FAERS Safety Report 5663552-X (Version None)
Quarter: 2008Q1

REPORT INFORMATION
  Report Type: 
  Country: None (occurrence: None)
  Receive Date: 20080313
  Receipt Date: 20080310
  Transmission Date: 20080703
  Serious: Yes (Hospitalization)
  Sender: FDA-Public Use
  Company Number: SG-MERCK-0803SGP00002

PATIENT
  Sex: Male

DRUGS (2)
  1. VYTORIN [Suspect]
     Route: 048
     Dates: end: 20080101
  2. WARFARIN [Concomitant]
     Route: 065

REACTIONS (5)
  - CONTUSION [None]
  - FALL [None]
  - HAEMORRHAGE [None]
  - INJURY [None]
  - INTERNATIONAL NORMALISED RATIO INCREASED [None]
